FAERS Safety Report 5744315-3 (Version None)
Quarter: 2008Q2

REPORT INFORMATION
  Report Type: 
  Country: None (occurrence: None)
  Receive Date: 20080516
  Receipt Date: 20080516
  Transmission Date: 20081010
  Serious: Yes (Disabling)
  Sender: FDA-Public Use
  Company Number: None

PATIENT
  Age: 19 Year
  Sex: Female
  Weight: 49.8957 kg

DRUGS (1)
  1. ZOVIA 1/35E-21 [Suspect]
     Indication: GALLBLADDER DISORDER
     Dosage: ONE PILL DAILY/AROUND FIVE WEEKS
     Dates: start: 20070828, end: 20071010

REACTIONS (1)
  - GALLBLADDER DISORDER [None]
